FAERS Safety Report 9453237 (Version 1)
Quarter: 2013Q3

REPORT INFORMATION
  Report Type: Report from Study
  Country: US (occurrence: US)
  Receive Date: 20130812
  Receipt Date: 20130812
  Transmission Date: 20140515
  Serious: Yes (Death)
  Sender: FDA-Public Use
  Company Number: US-SANOFI-AVENTIS-2013SA080302

PATIENT
  Sex: 0

DRUGS (4)
  1. CAPECITABINE [Suspect]
     Indication: RECTAL CANCER
     Dosage: EVERY 12 HRS, 5 DAYS PER WEEK DURIN RT
     Route: 048
  2. OXALIPLATIN [Suspect]
     Indication: RECTAL CANCER
     Dosage: OVER 2 HOURS?DAYS 1, 8, 15, 22, 29 OF RT
     Route: 042
  3. BEVACIZUMAB [Suspect]
     Indication: RECTAL CANCER
     Dosage: OVER 30 TO 90 MINUTES?DAY 1, 15, 29 OF RT
     Route: 042
  4. THERAPEUTIC RADIOPHARMACEUTICALS [Suspect]
     Indication: RECTAL CANCER
     Dosage: 50.4 GY
     Route: 065

REACTIONS (1)
  - Aspiration [Fatal]
